FAERS Safety Report 22282744 (Version 1)
Quarter: 2023Q2

REPORT INFORMATION
  Report Type: Spontaneous
  Country: CN (occurrence: CN)
  Receive Date: 20230504
  Receipt Date: 20230504
  Transmission Date: 20230722
  Serious: Yes (Life-Threatening, Other)
  Sender: FDA-Public Use
  Company Number: CN-STRIDES ARCOLAB LIMITED-2023SP006528

PATIENT

DRUGS (6)
  1. PREDNISOLONE [Suspect]
     Active Substance: PREDNISOLONE
     Indication: Diffuse large B-cell lymphoma
     Dosage: 100 MILLIGRAM, CYCLICAL; EVERY 21 DAYS; AS A PART OF RCDOP REGIMEN ON DAYS 2-6 OF EACH CYCLE
     Route: 042
  2. PREDNISOLONE [Suspect]
     Active Substance: PREDNISOLONE
     Dosage: 100 MILLIGRAM, CYCLICAL; EVERY 21 DAYS; AS A PART OF RCDOP REGIMEN ON DAYS 2-6 OF EACH CYCLE
     Route: 048
  3. RITUXIMAB [Suspect]
     Active Substance: RITUXIMAB
     Indication: Diffuse large B-cell lymphoma
     Dosage: 375 MILLIGRAM/SQ. METER; CYCLICAL EVERY 21 DAYS; AS A PART OF RCDOP REGIMEN ON DAY 1
     Route: 042
  4. CYCLOPHOSPHAMIDE [Suspect]
     Active Substance: CYCLOPHOSPHAMIDE
     Indication: Diffuse large B-cell lymphoma
     Dosage: 750 MILLIGRAM/SQ. METER; CYCLICAL EVERY 21 DAYS; AS A PART OF RCDOP REGIMEN
     Route: 042
  5. DOXORUBICIN [Suspect]
     Active Substance: DOXORUBICIN
     Indication: Diffuse large B-cell lymphoma
     Dosage: UNK, CYCLICAL, 20-30 MG/M 2, RCDOP REGIMEN
     Route: 042
  6. VINCRISTINE [Suspect]
     Active Substance: VINCRISTINE
     Indication: Diffuse large B-cell lymphoma
     Dosage: 1.4 MILLIGRAM/SQ. METER; CYCLICAL EVERY 21 DAYS; AS A PART OF RCDOP REGIMEN ON DAY 2
     Route: 042

REACTIONS (4)
  - Cardiotoxicity [Unknown]
  - Acute kidney injury [Unknown]
  - Atrial fibrillation [Unknown]
  - Cardiac failure acute [Unknown]
